FAERS Safety Report 8571047-9 (Version None)
Quarter: 2012Q3

REPORT INFORMATION
  Report Type: 
  Country: None (occurrence: None)
  Receive Date: 20120730
  Receipt Date: 20120730
  Transmission Date: 20120928
  Serious: Yes (Disabling)
  Sender: FDA-Public Use
  Company Number: None

PATIENT
  Sex: Male
  Weight: 97.5234 kg

DRUGS (3)
  1. CADUET [Suspect]
     Indication: BLOOD CHOLESTEROL INCREASED
     Dosage: 10/20MG QD PO
     Route: 048
     Dates: start: 20101019, end: 20120621
  2. CADUET [Suspect]
     Indication: HYPERTENSION
     Dosage: 10/20MG QD PO
     Route: 048
     Dates: start: 20101019, end: 20120621
  3. STATIN BASED DRUGS [Concomitant]

REACTIONS (8)
  - MYALGIA [None]
  - MUSCLE SPASMS [None]
  - COORDINATION ABNORMAL [None]
  - BALANCE DISORDER [None]
  - MYOPATHY [None]
  - TREMOR [None]
  - DEPRESSION [None]
  - MULTIPLE SCLEROSIS [None]
